FAERS Safety Report 4368594-2 (Version None)
Quarter: 2004Q2

REPORT INFORMATION
  Report Type: 
  Country: None (occurrence: None)
  Receive Date: 20040528
  Receipt Date: 20040517
  Transmission Date: 20050107
  Serious: Yes (Hospitalization)
  Sender: FDA-Public Use
  Company Number: 2004CG00945

PATIENT
  Age: 79 Year
  Sex: Male

DRUGS (2)
  1. ZESTRIL [Suspect]
     Dosage: 20 MG DAILY PO
     Route: 048
     Dates: start: 19980101
  2. PREVISCAN [Suspect]
     Dosage: 30 MG DAILY PO
     Route: 048
     Dates: start: 19940101

REACTIONS (11)
  - BLOOD BLISTER [None]
  - BLOOD CREATININE INCREASED [None]
  - BLOOD SODIUM DECREASED [None]
  - CHOLESTASIS [None]
  - HAEMATURIA [None]
  - HAEMOGLOBIN DECREASED [None]
  - HYPERKALAEMIA [None]
  - INTERNATIONAL NORMALISED RATIO INCREASED [None]
  - OEDEMA PERIPHERAL [None]
  - PURPURA [None]
  - SKIN NECROSIS [None]
